FAERS Safety Report 7405106-0 (Version None)
Quarter: 2011Q2

REPORT INFORMATION
  Report Type: 
  Country: None (occurrence: None)
  Receive Date: 20110411
  Receipt Date: 20110316
  Transmission Date: 20111010
  Serious: No
  Sender: FDA-Public Use
  Company Number: US-B.I. PHARMACEUTICALS,INC./RIDGEFIELD-2011-BP-08504BP

PATIENT
  Age: 75 Year
  Sex: Female

DRUGS (3)
  1. PRADAXA [Suspect]
     Indication: ATRIAL FIBRILLATION
     Dosage: 300 MG
     Route: 048
     Dates: start: 20110302
  2. SYNTHROID [Concomitant]
     Indication: HYPOTHYROIDISM
     Route: 048
  3. AMOXICILLIN [Concomitant]
     Indication: PROPHYLAXIS
     Route: 048
     Dates: start: 20110226, end: 20110307

REACTIONS (4)
  - FATIGUE [None]
  - DIZZINESS [None]
  - NAUSEA [None]
  - VISION BLURRED [None]
